FAERS Safety Report 16150354 (Version 6)
Quarter: 2019Q2

REPORT INFORMATION
  Report Type: Report from Study
  Country: US (occurrence: US)
  Receive Date: 20190402
  Receipt Date: 20190603
  Transmission Date: 20190711
  Serious: Yes (Hospitalization)
  Sender: FDA-Public Use
  Company Number: US-ACTELION-A-NJ2017-164550

PATIENT
  Age: 65 Year
  Sex: Female
  Weight: 60.77 kg

DRUGS (10)
  1. OXYGEN. [Concomitant]
     Active Substance: OXYGEN
  2. VELETRI [Suspect]
     Active Substance: EPOPROSTENOL
     Dosage: 30 NG/KG, PER MIN
     Route: 042
  3. VELETRI [Suspect]
     Active Substance: EPOPROSTENOL
     Dosage: 30.5 NG/KG, PER MIN
     Route: 042
  4. VELETRI [Suspect]
     Active Substance: EPOPROSTENOL
     Dosage: 24 NG/KG, PER MIN
     Route: 042
  5. VELETRI [Suspect]
     Active Substance: EPOPROSTENOL
     Dosage: 29.5 NG/KG, PER MIN
     Route: 042
  6. ADCIRCA [Concomitant]
     Active Substance: TADALAFIL
  7. VELETRI [Suspect]
     Active Substance: EPOPROSTENOL
     Dosage: 11.5 NG/KG, PER MIN
     Route: 042
  8. AMLODIPINE [Concomitant]
     Active Substance: AMLODIPINE BESYLATE
  9. LETAIRIS [Concomitant]
     Active Substance: AMBRISENTAN
  10. VELETRI [Suspect]
     Active Substance: EPOPROSTENOL
     Indication: PULMONARY HYPERTENSION
     Dosage: 9 NG/KG, PER MIN
     Route: 042

REACTIONS (35)
  - Influenza [Unknown]
  - Malaise [Unknown]
  - Catheter site erythema [Unknown]
  - Abdominal discomfort [Unknown]
  - Fatigue [Unknown]
  - Gastrointestinal haemorrhage [Unknown]
  - Fluid retention [Unknown]
  - Cardiac failure [Unknown]
  - Dyspnoea [Unknown]
  - Device use error [Unknown]
  - Catheter site infection [Unknown]
  - Chest pain [Unknown]
  - Lethargy [Unknown]
  - Diarrhoea [Unknown]
  - Disease complication [Unknown]
  - Product administration interrupted [Unknown]
  - Flushing [Unknown]
  - Pain in extremity [Unknown]
  - Internal haemorrhage [Unknown]
  - Pyrexia [Unknown]
  - Hair texture abnormal [Unknown]
  - Anaemia [Unknown]
  - Device defective [Recovering/Resolving]
  - Pain [Recovering/Resolving]
  - Hair growth abnormal [Unknown]
  - Transfusion [Unknown]
  - Headache [Recovered/Resolved]
  - Pulmonary hypertension [Unknown]
  - Arthritis [Unknown]
  - Nausea [Unknown]
  - Dyspnoea exertional [Not Recovered/Not Resolved]
  - Pain in jaw [Unknown]
  - Feeling hot [Unknown]
  - Product preparation issue [Unknown]
  - Catheter site swelling [Unknown]

NARRATIVE: CASE EVENT DATE: 201801
